FAERS Safety Report 4367687-3 (Version None)
Quarter: 2004Q2

REPORT INFORMATION
  Report Type: 
  Country: None (occurrence: None)
  Receive Date: 20040601
  Receipt Date: 20040527
  Transmission Date: 20050107
  Serious: Yes (Other)
  Sender: FDA-Public Use
  Company Number: 2004009670

PATIENT
  Age: 23 Year
  Sex: Female
  Weight: 58 kg

DRUGS (1)
  1. ZYBAN [Suspect]
     Dosage: 150MG SINGLE DOSE
     Route: 048

REACTIONS (4)
  - ERYTHEMA [None]
  - FATIGUE [None]
  - INTENTIONAL OVERDOSE [None]
  - SUICIDE ATTEMPT [None]
